FAERS Safety Report 15681671 (Version 2)
Quarter: 2018Q4

REPORT INFORMATION
  Report Type: Report from Study
  Country: None (occurrence: US)
  Receive Date: 20181203
  Receipt Date: 20181220
  Transmission Date: 20190205
  Serious: Yes (Other)
  Sender: FDA-Public Use
  Company Number: US-ABBVIE-18K-163-2533900-00

PATIENT
  Sex: Female

DRUGS (3)
  1. PREDNISONE. [Concomitant]
     Active Substance: PREDNISONE
  2. HUMIRA [Suspect]
     Active Substance: ADALIMUMAB
     Indication: PSORIATIC ARTHROPATHY
     Route: 058
  3. PREDNISONE. [Concomitant]
     Active Substance: PREDNISONE
     Indication: PRODUCT USED FOR UNKNOWN INDICATION

REACTIONS (14)
  - Muscle spasms [Unknown]
  - Blood potassium decreased [Recovering/Resolving]
  - Back pain [Unknown]
  - Arthralgia [Unknown]
  - Cartilage atrophy [Unknown]
  - Fatigue [Unknown]
  - Peripheral swelling [Unknown]
  - Injection site pain [Unknown]
  - Pain in extremity [Unknown]
  - Neck pain [Unknown]
  - Injection site bruising [Unknown]
  - Pain [Unknown]
  - Chronic kidney disease [Unknown]
  - Injection site mass [Unknown]
